FAERS Safety Report 16186165 (Version 1)
Quarter: 2019Q2

REPORT INFORMATION
  Report Type: Spontaneous
  Country: FR (occurrence: FR)
  Receive Date: 20190411
  Receipt Date: 20190411
  Transmission Date: 20190711
  Serious: Yes (Death, Other)
  Sender: FDA-Public Use
  Company Number: FR-MYLANLABS-2019M1033719

PATIENT
  Age: 50 Year
  Sex: Male
  Weight: 51 kg

DRUGS (5)
  1. RAMIPRIL. [Concomitant]
     Active Substance: RAMIPRIL
     Dosage: UNK
  2. SIMVASTATINE [Concomitant]
     Active Substance: SIMVASTATIN
     Dosage: UNK
  3. DUOPLAVIN [Concomitant]
     Active Substance: ASPIRIN\CLOPIDOGREL
     Dosage: UNK
  4. CHOLECALCIFEROL [Concomitant]
     Active Substance: CHOLECALCIFEROL
     Dosage: UNK
  5. METFORMIN [Suspect]
     Active Substance: METFORMIN HYDROCHLORIDE
     Indication: DIABETES MELLITUS
     Dosage: 2550 MILLIGRAM, QD
     Dates: end: 20180810

REACTIONS (6)
  - Shock [Fatal]
  - Diarrhoea [Recovered/Resolved]
  - Coma [Not Recovered/Not Resolved]
  - Renal failure [Not Recovered/Not Resolved]
  - Lactic acidosis [Recovered/Resolved]
  - Incorrect disposal of product [Recovering/Resolving]

NARRATIVE: CASE EVENT DATE: 20180810
